FAERS Safety Report 24667640 (Version 3)
Quarter: 2025Q1

REPORT INFORMATION
  Report Type: Spontaneous
  Country: JP (occurrence: JP)
  Receive Date: 20241126
  Receipt Date: 20250304
  Transmission Date: 20250409
  Serious: Yes (Hospitalization, Other)
  Sender: SANOFI AVENTIS
  Company Number: JP-SA-2024SA341250

PATIENT
  Age: 76 Year
  Sex: Male

DRUGS (7)
  1. DUPIXENT [Suspect]
     Active Substance: DUPILUMAB
     Indication: Asthma
     Route: 058
     Dates: start: 20241114
  2. MONTELUKAST SODIUM [Concomitant]
     Active Substance: MONTELUKAST SODIUM
     Indication: Asthma
     Dosage: 10 MG, QD
     Route: 048
  3. BILASTINE [Concomitant]
     Active Substance: BILASTINE
     Indication: Asthma
     Dosage: 20 MG, QD
     Route: 048
  4. AMLODIPINE BESYLATE [Concomitant]
     Active Substance: AMLODIPINE BESYLATE
     Indication: Hypertension
     Dosage: 10 MG, QD
     Route: 048
  5. AZILSARTAN KAMEDOXOMIL [Concomitant]
     Active Substance: AZILSARTAN KAMEDOXOMIL
     Indication: Hypertension
     Dosage: 40 MG, QD
     Route: 048
  6. PREDONINE [Concomitant]
     Active Substance: PREDNISOLONE
     Indication: Dermatitis exfoliative generalised
     Route: 048
     Dates: start: 20241121
  7. PREDONINE [Concomitant]
     Active Substance: PREDNISOLONE
     Indication: Product used for unknown indication
     Route: 065
     Dates: start: 20241107, end: 20241113

REACTIONS (4)
  - Dermatitis exfoliative generalised [Recovered/Resolved with Sequelae]
  - Flushing [Recovered/Resolved with Sequelae]
  - Swelling face [Unknown]
  - Off label use [Unknown]

NARRATIVE: CASE EVENT DATE: 20241114
